FAERS Safety Report 14639035 (Version 1)
Quarter: 2018Q1

REPORT INFORMATION
  Report Type: Spontaneous
  Country: FR (occurrence: FR)
  Receive Date: 20180315
  Receipt Date: 20180315
  Transmission Date: 20180509
  Serious: Yes (Other)
  Sender: FDA-Public Use
  Company Number: FR-MERCK KGAA-2043764

PATIENT
  Age: 52 Year
  Sex: Female

DRUGS (2)
  1. LEVOTHYROX 100 NF [Suspect]
     Active Substance: LEVOTHYROXINE SODIUM
     Dates: start: 2017
  2. NOVOTHYROX [Suspect]
     Active Substance: LEVOTHYROXINE SODIUM
     Indication: THYROID MASS

REACTIONS (19)
  - Gait disturbance [None]
  - Headache [None]
  - Fibromyalgia [None]
  - Sleep disorder [None]
  - Irritability [None]
  - Nausea [None]
  - Blood thyroid stimulating hormone decreased [None]
  - Dyspnoea [None]
  - Asthenia [None]
  - Pain [None]
  - Burning sensation mucosal [None]
  - Fatigue [None]
  - Burning sensation [None]
  - Heart rate increased [None]
  - Muscle spasms [None]
  - Dizziness [None]
  - Impaired driving ability [None]
  - Palpitations [None]
  - Loss of personal independence in daily activities [None]

NARRATIVE: CASE EVENT DATE: 20170915
